FAERS Safety Report 21479143 (Version 1)
Quarter: 2022Q4

REPORT INFORMATION
  Report Type: Spontaneous
  Country: US (occurrence: None)
  Receive Date: 20221018
  Receipt Date: 20221018
  Transmission Date: 20230113
  Serious: Yes (Death)
  Sender: FDA-Public Use
  Company Number: None

PATIENT
  Age: 60 Year
  Sex: Female

DRUGS (15)
  1. AMBRISENTAN [Suspect]
     Active Substance: AMBRISENTAN
     Indication: Pulmonary arterial hypertension
     Dosage: FREQUENCY : DAILY;?
     Route: 048
     Dates: start: 20210301, end: 20221006
  2. VENTAVIS [Concomitant]
     Active Substance: ILOPROST
  3. NORCO [Concomitant]
     Active Substance: ACETAMINOPHEN\HYDROCODONE BITARTRATE
  4. ONDANSETRON [Concomitant]
     Active Substance: ONDANSETRON
  5. FLONASE [Concomitant]
     Active Substance: FLUTICASONE PROPIONATE
  6. MIDODRINE [Concomitant]
     Active Substance: MIDODRINE
  7. LASIX [Concomitant]
     Active Substance: FUROSEMIDE
  8. BUPROPION [Concomitant]
     Active Substance: BUPROPION
  9. OMEPRAZOLE [Concomitant]
     Active Substance: OMEPRAZOLE
  10. GABAPENTIN [Concomitant]
     Active Substance: GABAPENTIN
  11. MVI-MINERALS [Concomitant]
  12. SODIUM BICARBONATE [Concomitant]
     Active Substance: SODIUM BICARBONATE
  13. ACLOVATE TOP CREAM [Concomitant]
  14. LIDEX TOP OINT [Concomitant]
  15. TRIAMCINOLONE TOP CREAM [Concomitant]

REACTIONS (2)
  - Cardio-respiratory arrest [None]
  - Therapy non-responder [None]

NARRATIVE: CASE EVENT DATE: 20221006
